FAERS Safety Report 8820490 (Version 2)
Quarter: 2012Q4

REPORT INFORMATION
  Report Type: 
  Country: US (occurrence: US)
  Receive Date: 20121002
  Receipt Date: 20121005
  Transmission Date: 20130627
  Serious: No
  Sender: FDA-Public Use
  Company Number: US-ASTRAZENECA-2012SE56912

PATIENT
  Age: 47 Year
  Sex: Male

DRUGS (4)
  1. CAPRELSA [Suspect]
     Indication: THYROID CANCER
     Route: 048
     Dates: start: 20120806
  2. OMEPRAZOLE [Concomitant]
  3. SYNTHROID [Concomitant]
  4. TYLENOL [Concomitant]

REACTIONS (7)
  - Hot flush [Not Recovered/Not Resolved]
  - Muscle spasms [Not Recovered/Not Resolved]
  - Chest discomfort [Recovered/Resolved]
  - Fatigue [Unknown]
  - Oral pain [Unknown]
  - Diarrhoea [Unknown]
  - Rash [Unknown]
